FAERS Safety Report 18774336 (Version 4)
Quarter: 2021Q3

REPORT INFORMATION
  Report Type: Report from Study
  Country: GR (occurrence: GR)
  Receive Date: 20210122
  Receipt Date: 20210728
  Transmission Date: 20211014
  Serious: Yes (Death, Hospitalization)
  Sender: FDA-Public Use
  Company Number: GR-KARYOPHARM-2020KPT001443

PATIENT
  Age: 72 Year
  Sex: Female
  Weight: 66 kg

DRUGS (14)
  1. VALTREX [Concomitant]
     Active Substance: VALACYCLOVIR HYDROCHLORIDE
     Indication: PROPHYLAXIS
     Dosage: 500 MG, QD
     Route: 048
     Dates: start: 20201006
  2. BACTRIMEL SPECIFIK [Concomitant]
     Indication: SEPSIS
     Dosage: 960 MG, TID
     Route: 042
     Dates: start: 20201018
  3. ISTERGAN [Concomitant]
     Indication: ANTIVIRAL PROPHYLAXIS
     Dosage: 0.5 G, QD
     Route: 048
     Dates: start: 2013
  4. SOLU?MEDROL [Concomitant]
     Active Substance: METHYLPREDNISOLONE SODIUM SUCCINATE
     Indication: SEPSIS
     Dosage: 20 MG, QID
     Route: 042
     Dates: start: 20201018
  5. ZYVOXID [Concomitant]
     Active Substance: LINEZOLID
     Indication: SEPSIS
     Dosage: 600 MG, BID
     Route: 042
     Dates: start: 20201018
  6. SELINEXOR [Suspect]
     Active Substance: SELINEXOR
     Indication: PLASMA CELL MYELOMA
     Dosage: 40 MG, 2X/WEEK
     Route: 048
     Dates: start: 20201006, end: 20201124
  7. BRIKLIN [AMIKACIN SULFATE] [Concomitant]
     Indication: SEPSIS
     Dosage: 500 MG, SINGLE
     Route: 042
     Dates: start: 20201018
  8. CANCIDAS [Concomitant]
     Active Substance: CASPOFUNGIN ACETATE
     Indication: SEPSIS
     Dosage: 70 MG, QD
     Route: 042
     Dates: start: 20201018
  9. ZITHROMAX [Concomitant]
     Active Substance: AZITHROMYCIN DIHYDRATE
     Dosage: 500 UNK
     Route: 042
     Dates: start: 20201108, end: 20201113
  10. DEXAMETHASONE. [Suspect]
     Active Substance: DEXAMETHASONE
     Indication: PLASMA CELL MYELOMA
     Dosage: 20 MG, 2X/WEEK
     Route: 048
     Dates: start: 20201006, end: 20201124
  11. MERONEM [Concomitant]
     Active Substance: MEROPENEM
     Indication: SEPSIS
     Dosage: 1 G, BID
     Route: 042
     Dates: start: 20201018
  12. MERONEM [Concomitant]
     Active Substance: MEROPENEM
     Dosage: 1 UNK
     Route: 042
     Dates: start: 20201108, end: 20201116
  13. NORVASC [Concomitant]
     Active Substance: AMLODIPINE BESYLATE
     Indication: HYPERTENSION
     Dosage: 10 MG, QD
     Route: 048
  14. ZITHROMAX [Concomitant]
     Active Substance: AZITHROMYCIN DIHYDRATE
     Indication: SEPSIS
     Dosage: 500 MG, QD
     Route: 042
     Dates: start: 20201018

REACTIONS (2)
  - Cardiac arrest [Fatal]
  - Respiratory tract infection [Recovered/Resolved]

NARRATIVE: CASE EVENT DATE: 20201121
